FAERS Safety Report 14654282 (Version 2)
Quarter: 2018Q2

REPORT INFORMATION
  Report Type: Spontaneous
  Country: CO (occurrence: CO)
  Receive Date: 20180319
  Receipt Date: 20180426
  Transmission Date: 20180711
  Serious: Yes (Hospitalization, Other)
  Sender: FDA-Public Use
  Company Number: CO-009507513-1803COL005686

PATIENT
  Age: 22 Year
  Sex: Female

DRUGS (1)
  1. IMPLANON [Suspect]
     Active Substance: ETONOGESTREL
     Dosage: 1 IMPLANT, UNK
     Route: 059
     Dates: start: 20180306, end: 201803

REACTIONS (4)
  - Cellulitis [Unknown]
  - Pain in extremity [Not Recovered/Not Resolved]
  - Haematoma [Unknown]
  - Contusion [Unknown]

NARRATIVE: CASE EVENT DATE: 201803
